FAERS Safety Report 8228519-6 (Version None)
Quarter: 2012Q1

REPORT INFORMATION
  Report Type: 
  Country: None (occurrence: None)
  Receive Date: 20120322
  Receipt Date: 20110511
  Transmission Date: 20120608
  Serious: No
  Sender: FDA-Public Use
  Company Number: US-BRISTOL-MYERS SQUIBB COMPANY-15736598

PATIENT
  Age: 62 Year
  Sex: Male

DRUGS (7)
  1. ERBITUX [Suspect]
     Dosage: SECOND DOSE ON 09MAY2011
     Dates: start: 20110502
  2. ATIVAN [Concomitant]
  3. METOPROLOL SUCCINATE [Concomitant]
     Indication: ATRIAL FIBRILLATION
  4. PAXIL [Concomitant]
  5. REGLAN [Concomitant]
  6. BENADRYL [Concomitant]
  7. PROTONIX [Concomitant]

REACTIONS (3)
  - ACNE [None]
  - DRY SKIN [None]
  - PYREXIA [None]
